FAERS Safety Report 17187056 (Version 1)
Quarter: 2019Q4

REPORT INFORMATION
  Report Type: Report from Study
  Country: US (occurrence: US)
  Receive Date: 20191220
  Receipt Date: 20191220
  Transmission Date: 20200122
  Serious: Yes (Hospitalization)
  Sender: FDA-Public Use
  Company Number: US-JNJFOC-20191232634

PATIENT
  Age: 13 Year
  Sex: Male

DRUGS (16)
  1. HUMIRA [Concomitant]
     Active Substance: ADALIMUMAB
     Dates: start: 20190509
  2. CIPROFLOXACIN. [Concomitant]
     Active Substance: CIPROFLOXACIN
  3. HUMIRA [Concomitant]
     Active Substance: ADALIMUMAB
     Dates: start: 20140102
  4. 5-ASA [Concomitant]
     Active Substance: MESALAMINE
     Route: 054
  5. METRONIDAZOLE. [Concomitant]
     Active Substance: METRONIDAZOLE
  6. ONDANSETRON [Concomitant]
     Active Substance: ONDANSETRON
  7. DICYCLOMINE                        /00068601/ [Concomitant]
     Active Substance: DICYCLOMINE HYDROCHLORIDE
  8. PARACETAMOL [Concomitant]
     Active Substance: ACETAMINOPHEN
  9. AMITRIPTYLINE [Concomitant]
     Active Substance: AMITRIPTYLINE
  10. INFLIXIMAB, RECOMBINANT [Suspect]
     Active Substance: INFLIXIMAB
     Indication: INFLAMMATORY BOWEL DISEASE
     Route: 042
     Dates: start: 20121129
  11. FAMOTIDINE. [Concomitant]
     Active Substance: FAMOTIDINE
  12. INFLIXIMAB, RECOMBINANT [Suspect]
     Active Substance: INFLIXIMAB
     Route: 042
     Dates: start: 20190320, end: 20190501
  13. PRAMOXINE [Concomitant]
     Active Substance: PRAMOXINE
  14. HYOSCYAMINE. [Concomitant]
     Active Substance: HYOSCYAMINE
  15. LOPERAMIDE [Concomitant]
     Active Substance: LOPERAMIDE
  16. OMEPRAZOLE. [Concomitant]
     Active Substance: OMEPRAZOLE

REACTIONS (1)
  - Abdominal pain [Not Recovered/Not Resolved]

NARRATIVE: CASE EVENT DATE: 20191203
